FAERS Safety Report 4876216-7 (Version None)
Quarter: 2005Q4

REPORT INFORMATION
  Report Type: 
  Country: None (occurrence: None)
  Receive Date: 20051205
  Receipt Date: 20050609
  Transmission Date: 20060501
  Serious: No
  Sender: FDA-Public Use
  Company Number: USA0506100113

PATIENT
  Sex: Male

DRUGS (5)
  1. ALIMTA [Suspect]
     Indication: LUNG NEOPLASM MALIGNANT
     Dosage: 500 MG/M2
  2. GEMZAR [Suspect]
     Indication: LUNG NEOPLASM MALIGNANT
  3. FOLIC ACID [Concomitant]
  4. VITAMIN B12 NOS [Concomitant]
  5. CARBOPLATIN [Concomitant]

REACTIONS (2)
  - ABDOMINAL DISTENSION [None]
  - DYSPEPSIA [None]
